FAERS Safety Report 6381186-9 (Version None)
Quarter: 2009Q3

REPORT INFORMATION
  Report Type: 
  Country: None (occurrence: None)
  Receive Date: 20090929
  Receipt Date: 20090909
  Transmission Date: 20100115
  Serious: No
  Sender: FDA-Public Use
  Company Number: US-TYCO HEALTHCARE/MALLINCKRODT-T200901706

PATIENT
  Sex: Female

DRUGS (3)
  1. THALLOUS CHLORIDE TL-201 [Suspect]
     Indication: SCAN MYOCARDIAL PERFUSION
     Dosage: 4.2 MCI, SINGLE
     Route: 042
     Dates: start: 20090902, end: 20090902
  2. ULTRA-TECHNEKOW [Suspect]
     Indication: CARDIAC STRESS TEST
     Dosage: 30.2 MCI, SINGLE
     Route: 042
     Dates: start: 20090902, end: 20090902
  3. TECHNETIUM TC 99M SESTAMIBI [Suspect]
     Indication: CARDIAC STRESS TEST
     Dosage: UNK, SINGLE
     Route: 042
     Dates: start: 20090902, end: 20090902

REACTIONS (1)
  - URTICARIA [None]
